FAERS Safety Report 24133759 (Version 1)
Quarter: 2024Q3

REPORT INFORMATION
  Report Type: Spontaneous
  Country: GB (occurrence: GB)
  Receive Date: 20240724
  Receipt Date: 20240724
  Transmission Date: 20241017
  Serious: Yes (Other)
  Sender: GLAXOSMITHKLINE
  Company Number: GB-MHRA-31195212

PATIENT

DRUGS (2)
  1. LAMOTRIGINE [Suspect]
     Active Substance: LAMOTRIGINE
     Indication: Product used for unknown indication
     Dosage: 200 MG, QD; MARKED 100 / GSEE5 TWO PER DAY
     Route: 065
  2. DONEPEZIL [Concomitant]
     Active Substance: DONEPEZIL\DONEPEZIL HYDROCHLORIDE
     Indication: Product used for unknown indication
     Dosage: 5 MG
     Route: 065

REACTIONS (4)
  - Depression [Recovered/Resolved]
  - Lip dry [Recovered/Resolved]
  - Condition aggravated [Unknown]
  - Taste disorder [Recovered/Resolved]
